FAERS Safety Report 21668930 (Version 1)
Quarter: 2022Q4

REPORT INFORMATION
  Report Type: Spontaneous
  Country: US (occurrence: None)
  Receive Date: 20221201
  Receipt Date: 20221201
  Transmission Date: 20230112
  Serious: Yes (Other)
  Sender: FDA-Public Use
  Company Number: None

PATIENT
  Age: 80 Year
  Sex: Male
  Weight: 72 kg

DRUGS (6)
  1. GEMTESA [Suspect]
     Active Substance: VIBEGRON
     Indication: Hypertonic bladder
     Dosage: FREQUENCY : DAILY;?
     Route: 048
     Dates: start: 20220901, end: 20221119
  2. LOSARTAN [Concomitant]
     Active Substance: LOSARTAN
  3. ATENOLOL [Concomitant]
     Active Substance: ATENOLOL
  4. Lovastanin [Concomitant]
  5. ASPIRIN [Concomitant]
     Active Substance: ASPIRIN
  6. Cultrelle Probiotic [Concomitant]

REACTIONS (2)
  - Anal incontinence [None]
  - Drug ineffective [None]

NARRATIVE: CASE EVENT DATE: 20221130
